FAERS Safety Report 5383397-8 (Version None)
Quarter: 2007Q3

REPORT INFORMATION
  Report Type: 
  Country: None (occurrence: None)
  Receive Date: 20070710
  Receipt Date: 20070629
  Transmission Date: 20080115
  Serious: Yes (Other)
  Sender: FDA-Public Use
  Company Number: FR-PFIZER INC-2007054884

PATIENT
  Age: 86 Year
  Sex: Female

DRUGS (1)
  1. LYRICA [Suspect]

REACTIONS (2)
  - ABASIA [None]
  - OCULAR DISCOMFORT [None]
